FAERS Safety Report 7579739-5 (Version None)
Quarter: 2011Q2

REPORT INFORMATION
  Report Type: 
  Country: None (occurrence: None)
  Receive Date: 20110622
  Receipt Date: 20110614
  Transmission Date: 20111010
  Serious: Yes (Hospitalization, Other)
  Sender: FDA-Public Use
  Company Number: DKLU1071345

PATIENT
  Age: 11 Year
  Sex: Female

DRUGS (1)
  1. SABRIL [Suspect]
     Indication: CONVULSION
     Dosage: 500 MG MLLIGRAM(S), 2 IN 1 D, ORAL
     Route: 048
     Dates: start: 20110519

REACTIONS (4)
  - DYSPNOEA [None]
  - DRUG INEFFECTIVE [None]
  - ORAL SURGERY [None]
  - CONVULSION [None]
